FAERS Safety Report 8592605-1 (Version None)
Quarter: 2012Q3

REPORT INFORMATION
  Report Type: 
  Country: None (occurrence: None)
  Receive Date: 20120814
  Receipt Date: 20120810
  Transmission Date: 20120928
  Serious: Yes (Death, Hospitalization, Other)
  Sender: FDA-Public Use
  Company Number: DK-GENZYME-CLOF-1002058

PATIENT
  Sex: Male
  Weight: 65.6 kg

DRUGS (7)
  1. LEVOTHYROXINE SODIUM [Concomitant]
     Indication: HYPOTHYROIDISM
     Dosage: 25 MCG, QD
     Route: 048
     Dates: end: 20120106
  2. POTASSIUM CHLORIDE [Concomitant]
     Indication: HYPOKALAEMIA
     Dosage: 1500 MG, TID
     Route: 048
     Dates: start: 20100103, end: 20120106
  3. CLOFARABINE [Suspect]
     Indication: ACUTE MYELOID LEUKAEMIA
     Dosage: 36 MG, QD
     Route: 065
     Dates: start: 20091116, end: 20091120
  4. ASPIRIN [Concomitant]
     Indication: THROMBOSIS PROPHYLAXIS
     Dosage: 75 MG, QD
     Route: 048
     Dates: end: 20120106
  5. PANTOPRAZOLE [Concomitant]
     Indication: DYSPEPSIA
     Dosage: 40 UNK, QD
     Route: 048
     Dates: start: 20100103, end: 20120106
  6. CLOFARABINE [Suspect]
     Dosage: 36 MG, QD
     Route: 065
     Dates: start: 20100120, end: 20100603
  7. METOPROLOL SUCCINATE [Concomitant]
     Indication: HYPERTENSION
     Dosage: 50 MG, QD
     Route: 048
     Dates: end: 20100106

REACTIONS (5)
  - SEPSIS [None]
  - ABDOMINAL PAIN [None]
  - ILEUS [None]
  - LEUKOPENIA [None]
  - HYPOTENSION [None]
